FAERS Safety Report 8400816 (Version 2)
Quarter: 2013Q1

REPORT INFORMATION
  Report Type: Spontaneous
  Country: US (occurrence: US)
  Receive Date: 20120210
  Receipt Date: 20130219
  Transmission Date: 20140127
  Serious: No
  Sender: FDA-Public Use
  Company Number: US-BRISTOL-MYERS SQUIBB COMPANY-16230047

PATIENT
  Age: 33 Year
  Sex: Female

DRUGS (1)
  1. ORENCIA FOR INJ [Suspect]
     Indication: RHEUMATOID ARTHRITIS
     Dosage: SECOND INF:9NOV11?LAST INF:13MAY2012
     Route: 058
     Dates: start: 20111107

REACTIONS (3)
  - Nasopharyngitis [Unknown]
  - Oral herpes [Unknown]
  - Drug ineffective [Unknown]
